FAERS Safety Report 8370043-4 (Version None)
Quarter: 2012Q2

REPORT INFORMATION
  Report Type: 
  Country: None (occurrence: None)
  Receive Date: 20120518
  Receipt Date: 20120515
  Transmission Date: 20120825
  Serious: Yes (Hospitalization)
  Sender: FDA-Public Use
  Company Number: PHHY2011CA78334

PATIENT
  Sex: Male

DRUGS (8)
  1. DIVALPROEX SODIUM [Concomitant]
     Dosage: 750 MG, QHS
  2. PROPRANOLOL [Concomitant]
     Dosage: 40 MG, DAILY
  3. LITHIUM CARBONATE [Concomitant]
     Dosage: 600 MG, QHS
  4. ESCITALOPRAM [Concomitant]
     Dosage: 10 MG, QD
  5. CLONAZEPAM [Concomitant]
     Dosage: 0.5 MG, TID
  6. FERROUS GLUCONATE [Concomitant]
     Dosage: 900 MG, DAILY
  7. ZOLEDRONOC ACID [Suspect]
     Indication: OSTEOPOROSIS
     Dosage: UNK UKN, UNK
     Route: 042
     Dates: start: 20100630
  8. ZOLEDRONOC ACID [Suspect]
     Dosage: UNK UKN, UNK
     Route: 042
     Dates: start: 20110915

REACTIONS (1)
  - CHOLELITHIASIS [None]
